FAERS Safety Report 8618722-5 (Version None)
Quarter: 2012Q3

REPORT INFORMATION
  Report Type: 
  Country: None (occurrence: None)
  Receive Date: 20120815
  Receipt Date: 20120815
  Transmission Date: 20120928
  Serious: Yes (Other)
  Sender: FDA-Public Use
  Company Number: None

PATIENT
  Sex: Female

DRUGS (1)
  1. XELODA [Suspect]
     Indication: NEOPLASM MALIGNANT
     Dosage: 2000 MG TWICE A DAY BY MOUTH
     Route: 048
     Dates: start: 20120616, end: 20120622

REACTIONS (5)
  - HYPOTENSION [None]
  - PLATELET COUNT DECREASED [None]
  - DEHYDRATION [None]
  - WEIGHT DECREASED [None]
  - DIARRHOEA [None]
